FAERS Safety Report 8000093-9 (Version None)
Quarter: 2011Q4

REPORT INFORMATION
  Report Type: 
  Country: None (occurrence: None)
  Receive Date: 20111222
  Receipt Date: 20111209
  Transmission Date: 20120403
  Serious: Yes (Hospitalization)
  Sender: FDA-Public Use
  Company Number: DE-ELI_LILLY_AND_COMPANY-DE201006007723

PATIENT
  Sex: Female

DRUGS (2)
  1. FORTEO [Suspect]
     Indication: OSTEOPOROSIS POSTMENOPAUSAL
     Dosage: UNK, DAILY (1/D)
     Route: 058
     Dates: start: 20100608, end: 20110101
  2. FORTEO [Suspect]
     Route: 058

REACTIONS (9)
  - VERTIGO [None]
  - ASTHENIA [None]
  - BACK PAIN [None]
  - FLUSHING [None]
  - DRUG INTOLERANCE [None]
  - NAUSEA [None]
  - VOMITING [None]
  - DIZZINESS [None]
  - INJECTION [None]
